FAERS Safety Report 25179272 (Version 1)
Quarter: 2025Q2

REPORT INFORMATION
  Report Type: Spontaneous
  Country: GB (occurrence: GB)
  Receive Date: 20250409
  Receipt Date: 20250409
  Transmission Date: 20250717
  Serious: Yes (Other)
  Sender: MYLAN
  Company Number: GB-MHRA-TPP19341339C12900624YC1743523282205

PATIENT
  Age: 82 Year
  Sex: Male
  Weight: 92 kg

DRUGS (24)
  1. FINASTERIDE [Suspect]
     Active Substance: FINASTERIDE
     Indication: Product used for unknown indication
     Dosage: 5 MILLIGRAM, QD
     Dates: start: 20230224
  2. FINASTERIDE [Suspect]
     Active Substance: FINASTERIDE
     Dosage: 5 MILLIGRAM, QD
     Route: 065
     Dates: start: 20230224
  3. FINASTERIDE [Suspect]
     Active Substance: FINASTERIDE
     Dosage: 5 MILLIGRAM, QD
     Route: 065
     Dates: start: 20230224
  4. FINASTERIDE [Suspect]
     Active Substance: FINASTERIDE
     Dosage: 5 MILLIGRAM, QD
     Dates: start: 20230224
  5. FOLIC ACID [Concomitant]
     Active Substance: FOLIC ACID
     Indication: Ill-defined disorder
  6. FOLIC ACID [Concomitant]
     Active Substance: FOLIC ACID
     Route: 065
  7. FOLIC ACID [Concomitant]
     Active Substance: FOLIC ACID
     Route: 065
  8. FOLIC ACID [Concomitant]
     Active Substance: FOLIC ACID
  9. METHOTREXATE [Concomitant]
     Active Substance: METHOTREXATE
     Indication: Ill-defined disorder
     Dosage: 5 DOSAGE FORM, QW (12.5MG (FIVE TABLETS)ONCE A WEEK ON A SATURDAY)
     Dates: start: 20180815
  10. METHOTREXATE [Concomitant]
     Active Substance: METHOTREXATE
     Dosage: 5 DOSAGE FORM, QW (12.5MG (FIVE TABLETS)ONCE A WEEK ON A SATURDAY)
     Route: 065
     Dates: start: 20180815
  11. METHOTREXATE [Concomitant]
     Active Substance: METHOTREXATE
     Dosage: 5 DOSAGE FORM, QW (12.5MG (FIVE TABLETS)ONCE A WEEK ON A SATURDAY)
     Route: 065
     Dates: start: 20180815
  12. METHOTREXATE [Concomitant]
     Active Substance: METHOTREXATE
     Dosage: 5 DOSAGE FORM, QW (12.5MG (FIVE TABLETS)ONCE A WEEK ON A SATURDAY)
     Dates: start: 20180815
  13. EPIMAX EXCETRA [Concomitant]
     Indication: Ill-defined disorder
  14. EPIMAX EXCETRA [Concomitant]
     Route: 065
  15. EPIMAX EXCETRA [Concomitant]
     Route: 065
  16. EPIMAX EXCETRA [Concomitant]
  17. TAMSULOSIN HYDROCHLORIDE [Concomitant]
     Active Substance: TAMSULOSIN HYDROCHLORIDE
     Indication: Bladder disorder
     Dosage: 1 DOSAGE FORM, QD (TAKE ONE CAPSULE DAILY TO HELP BLADDER SYMPTOMS)
     Dates: start: 20220511
  18. TAMSULOSIN HYDROCHLORIDE [Concomitant]
     Active Substance: TAMSULOSIN HYDROCHLORIDE
     Dosage: 1 DOSAGE FORM, QD (TAKE ONE CAPSULE DAILY TO HELP BLADDER SYMPTOMS)
     Route: 065
     Dates: start: 20220511
  19. TAMSULOSIN HYDROCHLORIDE [Concomitant]
     Active Substance: TAMSULOSIN HYDROCHLORIDE
     Dosage: 1 DOSAGE FORM, QD (TAKE ONE CAPSULE DAILY TO HELP BLADDER SYMPTOMS)
     Route: 065
     Dates: start: 20220511
  20. TAMSULOSIN HYDROCHLORIDE [Concomitant]
     Active Substance: TAMSULOSIN HYDROCHLORIDE
     Dosage: 1 DOSAGE FORM, QD (TAKE ONE CAPSULE DAILY TO HELP BLADDER SYMPTOMS)
     Dates: start: 20220511
  21. SULFASALAZINE [Concomitant]
     Active Substance: SULFASALAZINE
     Indication: Ill-defined disorder
     Dosage: 2 DOSAGE FORM, BID (TAKE TWO TWICE A DAY)
     Dates: start: 20230505
  22. SULFASALAZINE [Concomitant]
     Active Substance: SULFASALAZINE
     Dosage: 2 DOSAGE FORM, BID (TAKE TWO TWICE A DAY)
     Route: 065
     Dates: start: 20230505
  23. SULFASALAZINE [Concomitant]
     Active Substance: SULFASALAZINE
     Dosage: 2 DOSAGE FORM, BID (TAKE TWO TWICE A DAY)
     Route: 065
     Dates: start: 20230505
  24. SULFASALAZINE [Concomitant]
     Active Substance: SULFASALAZINE
     Dosage: 2 DOSAGE FORM, BID (TAKE TWO TWICE A DAY)
     Dates: start: 20230505

REACTIONS (5)
  - Affect lability [Unknown]
  - Personality change [Unknown]
  - Irritability [Unknown]
  - Anger [Unknown]
  - Tearfulness [Unknown]
